FAERS Safety Report 10590475 (Version 1)
Quarter: 2014Q4

REPORT INFORMATION
  Report Type: Spontaneous
  Country: FR (occurrence: FR)
  Receive Date: 20141118
  Receipt Date: 20141118
  Transmission Date: 20150529
  Serious: Yes (Death, Hospitalization, Other)
  Sender: FDA-Public Use
  Company Number: FR-PFIZER INC-2014314833

PATIENT
  Age: 84 Year
  Sex: Male

DRUGS (8)
  1. LYRICA [Suspect]
     Active Substance: PREGABALIN
     Indication: PAIN
     Dosage: 25 MG, 1X/DAY
     Route: 048
     Dates: start: 20140805, end: 20141009
  2. DECAPEPTYL [Concomitant]
     Active Substance: TRIPTORELIN ACETATE
     Indication: PROSTATE CANCER
     Dosage: UNK
     Dates: start: 2007
  3. RAMIPRIL. [Concomitant]
     Active Substance: RAMIPRIL
     Dosage: UNK
     Dates: start: 2001
  4. KARDEGIC [Concomitant]
     Active Substance: ASPIRIN LYSINE
     Dosage: UNK
     Dates: start: 2001
  5. PRAVASTATIN [Concomitant]
     Active Substance: PRAVASTATIN\PRAVASTATIN SODIUM
     Dosage: UNK
     Dates: start: 2001
  6. ALPRESS [Concomitant]
     Active Substance: PRAZOSIN
     Dosage: UNK
     Dates: start: 2001
  7. FUROSEMIDE. [Concomitant]
     Active Substance: FUROSEMIDE
     Dosage: UNK
     Dates: start: 2001
  8. ESIDREX [Concomitant]
     Active Substance: HYDROCHLOROTHIAZIDE
     Dosage: UNK
     Dates: start: 2001

REACTIONS (8)
  - Lip blister [Unknown]
  - Anaemia folate deficiency [Unknown]
  - Petechiae [Unknown]
  - Thrombocytopenia [Fatal]
  - Anaemia vitamin B12 deficiency [Unknown]
  - Haemoglobin decreased [Unknown]
  - Tongue blistering [Unknown]
  - Bone marrow failure [Fatal]

NARRATIVE: CASE EVENT DATE: 20140922
